FAERS Safety Report 6342319-3 (Version None)
Quarter: 2009Q3

REPORT INFORMATION
  Report Type: 
  Country: None (occurrence: None)
  Receive Date: 20090907
  Receipt Date: 20070926
  Transmission Date: 20100115
  Serious: Yes (Hospitalization, Other)
  Sender: FDA-Public Use
  Company Number: US-ASTRAZENECA-2006UW22332

PATIENT
  Age: 40 Year
  Sex: Female
  Weight: 64 kg

DRUGS (18)
  1. SEROQUEL [Suspect]
     Indication: BIPOLAR DISORDER
     Route: 048
     Dates: start: 20020101
  2. SEROQUEL [Suspect]
     Indication: POST-TRAUMATIC STRESS DISORDER
     Route: 048
     Dates: start: 20020101
  3. SEROQUEL [Suspect]
     Indication: ANXIETY DISORDER
     Route: 048
     Dates: start: 20020101
  4. SEROQUEL [Suspect]
     Indication: MAJOR DEPRESSION
     Route: 048
     Dates: start: 20020101
  5. SEROQUEL [Suspect]
     Indication: MOOD SWINGS
     Route: 048
     Dates: start: 20020101
  6. SEROQUEL [Suspect]
     Dosage: 100 - 1200 MG DAILY
     Route: 048
     Dates: start: 20020319
  7. SEROQUEL [Suspect]
     Dosage: 100 - 1200 MG DAILY
     Route: 048
     Dates: start: 20020319
  8. SEROQUEL [Suspect]
     Dosage: 100 - 1200 MG DAILY
     Route: 048
     Dates: start: 20020319
  9. SEROQUEL [Suspect]
     Dosage: 100 - 1200 MG DAILY
     Route: 048
     Dates: start: 20020319
  10. SEROQUEL [Suspect]
     Dosage: 100 - 1200 MG DAILY
     Route: 048
     Dates: start: 20020319
  11. ABILIFY (ARIPIPARAZOLE) [Concomitant]
  12. ABILIFY (ARIPIPARAZOLE) [Concomitant]
  13. ZOLOFT [Concomitant]
     Dates: start: 20020319
  14. KLONOPIN [Concomitant]
     Dosage: 0.5 - 1.5 MG DAILY
     Route: 048
     Dates: start: 20040403
  15. TRAZODONE [Concomitant]
     Indication: INSOMNIA
     Dosage: 100 - 200 MG AT BED TIME
     Route: 048
     Dates: start: 20060706
  16. VISTARIL [Concomitant]
     Route: 048
     Dates: start: 20060803
  17. ALLEGRA [Concomitant]
     Route: 048
     Dates: start: 20060803
  18. GABITRIL [Concomitant]
     Dates: start: 20041029

REACTIONS (15)
  - BACK PAIN [None]
  - BIOPSY LYMPH GLAND [None]
  - CHOLECYSTECTOMY [None]
  - CONSTIPATION [None]
  - DIABETES MELLITUS [None]
  - GALLBLADDER OPERATION [None]
  - LYMPHADENOPATHY [None]
  - LYMPHOEDEMA [None]
  - MULTIPLE ALLERGIES [None]
  - PANCREATITIS [None]
  - PANCREATITIS ACUTE [None]
  - PANCREATITIS RELAPSING [None]
  - PEPTIC ULCER [None]
  - SURGERY [None]
  - TREMOR [None]
